FAERS Safety Report 10704034 (Version 1)
Quarter: 2015Q1

REPORT INFORMATION
  Report Type: Spontaneous
  Country: US (occurrence: None)
  Receive Date: 20150109
  Receipt Date: 20150109
  Transmission Date: 20150721
  Serious: No
  Sender: FDA-Public Use
  Company Number: None

PATIENT
  Age: 59 Year
  Sex: Male
  Weight: 74.84 kg

DRUGS (2)
  1. BUTALBITAL-ASA-CAFFEINE 50-325 [Suspect]
     Active Substance: ASPIRIN\BUTALBITAL\CAFFEINE
     Indication: VASCULAR HEADACHE
     Dosage: 2 ORALLY PRN
     Route: 048
     Dates: start: 2010, end: 201409
  2. BUTALBITAL-ASA-CAFFEINE 50-325 [Suspect]
     Active Substance: ASPIRIN\BUTALBITAL\CAFFEINE
     Indication: TENSION
     Dosage: 2 ORALLY PRN
     Route: 048
     Dates: start: 2010, end: 201409

REACTIONS (2)
  - Lip swelling [None]
  - Urticaria [None]

NARRATIVE: CASE EVENT DATE: 2010
